FAERS Safety Report 5170554-9 (Version None)
Quarter: 2006Q4

REPORT INFORMATION
  Report Type: 
  Country: None (occurrence: None)
  Receive Date: 20061204
  Receipt Date: 20061130
  Transmission Date: 20070319
  Serious: Yes (Disabling)
  Sender: FDA-Public Use
  Company Number: TCI2006A04103

PATIENT
  Age: 78 Year
  Sex: Male

DRUGS (4)
  1. LANSOPRAZOLE [Suspect]
     Indication: GASTROINTESTINAL HAEMORRHAGE
     Dosage: 15 MG (15 MG, 1 IN 1 D)
     Route: 048
     Dates: start: 20060630, end: 20060821
  2. FERROUS CITRATE [Suspect]
     Dosage: 1.2 G (1.2 G, 1 IN 1 D)
     Dates: start: 20060704, end: 20060731
  3. AMINOFLUID (AMINOFLUID) (INJECTION) [Concomitant]
  4. LACTEC (LACTEC) (INJECTION) [Concomitant]

REACTIONS (4)
  - CONDITION AGGRAVATED [None]
  - DIABETIC NEPHROPATHY [None]
  - DISEASE PROGRESSION [None]
  - RENAL IMPAIRMENT [None]
